FAERS Safety Report 7052849-7 (Version None)
Quarter: 2010Q4

REPORT INFORMATION
  Report Type: 
  Country: None (occurrence: None)
  Receive Date: 20101019
  Receipt Date: 20101006
  Transmission Date: 20110411
  Serious: Yes (Hospitalization)
  Sender: FDA-Public Use
  Company Number: NL-MYLANLABS-2010S1018719

PATIENT
  Age: 85 Year
  Sex: Female

DRUGS (5)
  1. HYDROCHLOROTHIAZIDE [Suspect]
     Route: 065
  2. INSULIN [Concomitant]
     Route: 065
  3. DIGOXIN [Concomitant]
     Route: 065
  4. TAMOXIFEN CITRATE [Concomitant]
     Route: 065
  5. AMILORIDE HYDROCHLORIDE [Concomitant]
     Route: 065

REACTIONS (2)
  - DELIRIUM [None]
  - HYPERCALCAEMIA [None]
